FAERS Safety Report 4849995-2 (Version None)
Quarter: 2005Q4

REPORT INFORMATION
  Report Type: 
  Country: None (occurrence: None)
  Receive Date: 20051123
  Receipt Date: 20050121
  Transmission Date: 20060501
  Serious: Yes (Hospitalization, Other)
  Sender: FDA-Public Use
  Company Number: 2004109557

PATIENT
  Age: 72 Year
  Sex: Female

DRUGS (9)
  1. LIPITOR [Suspect]
     Indication: DYSLIPIDAEMIA
     Dosage: 80 MG (80 MG, 1 IN 1 D) ORAL
     Route: 048
  2. FENOFIBRATE [Suspect]
     Indication: DYSLIPIDAEMIA
     Dosage: 160 MG (160 MG, 1 IN 1 D), ORAL
     Route: 048
     Dates: start: 20030101
  3. ACETYLSALICYLIC ACID SRT [Concomitant]
  4. FELODIPINE [Concomitant]
  5. PRINZIDE [Concomitant]
  6. ZINC (ZINC) [Concomitant]
  7. CALCIUM (CALCIUM) [Concomitant]
  8. PANTOPRAZOLE SODIUM [Concomitant]
  9. EZETIMIBE [Suspect]
     Indication: DYSLIPIDAEMIA
     Dosage: 10 MG
     Route: 048
     Dates: start: 20030101

REACTIONS (4)
  - ALANINE AMINOTRANSFERASE INCREASED [None]
  - ASPARTATE AMINOTRANSFERASE INCREASED [None]
  - BLOOD CREATINE PHOSPHOKINASE INCREASED [None]
  - RHABDOMYOLYSIS [None]
